FAERS Safety Report 20023538 (Version 1)
Quarter: 2021Q4

REPORT INFORMATION
  Report Type: Spontaneous
  Country: CA (occurrence: CA)
  Receive Date: 20211102
  Receipt Date: 20211102
  Transmission Date: 20220303
  Serious: Yes (Life-Threatening, Hospitalization, Other)
  Sender: FDA-Public Use
  Company Number: CA-ALLERGAN-2136438US

PATIENT
  Sex: Female
  Weight: 55 kg

DRUGS (2)
  1. COMBIGAN [Suspect]
     Active Substance: BRIMONIDINE TARTRATE\TIMOLOL MALEATE
     Indication: Cataract operation
     Dosage: 1 DF
     Route: 047
  2. PILOCARPINE [Suspect]
     Active Substance: PILOCARPINE
     Indication: Cataract
     Dosage: 1 DF
     Route: 047

REACTIONS (4)
  - Altered state of consciousness [Recovered/Resolved]
  - Bronchospasm [Recovered/Resolved]
  - Respiratory distress [Recovered/Resolved]
  - Off label use [Unknown]
